FAERS Safety Report 13068004 (Version 2)
Quarter: 2017Q1

REPORT INFORMATION
  Report Type: Spontaneous
  Country: US (occurrence: US)
  Receive Date: 20161228
  Receipt Date: 20170125
  Transmission Date: 20170428
  Serious: Yes (Other)
  Sender: FDA-Public Use
  Company Number: US-BRISTOL-MYERS SQUIBB COMPANY-BMS-2016-109585

PATIENT
  Sex: Male

DRUGS (1)
  1. YERVOY [Suspect]
     Active Substance: IPILIMUMAB
     Indication: MALIGNANT MELANOMA
     Dosage: 934 MG, UNK
     Route: 065
     Dates: start: 20161201

REACTIONS (4)
  - Rash [Recovering/Resolving]
  - Prescribed overdose [Unknown]
  - Pruritus [Unknown]
  - Angioedema [Recovered/Resolved]
